FAERS Safety Report 6639832-8 (Version None)
Quarter: 2010Q1

REPORT INFORMATION
  Report Type: 
  Country: None (occurrence: None)
  Receive Date: 20100318
  Receipt Date: 20100308
  Transmission Date: 20100710
  Serious: Yes (Other)
  Sender: FDA-Public Use
  Company Number: CA-BRISTOL-MYERS SQUIBB COMPANY-15021108

PATIENT
  Age: 64 Year
  Sex: Male

DRUGS (1)
  1. MITOMYCIN [Suspect]

REACTIONS (1)
  - IRIDOCYCLITIS [None]
